FAERS Safety Report 8352864-7 (Version None)
Quarter: 2012Q2

REPORT INFORMATION
  Report Type: 
  Country: None (occurrence: None)
  Receive Date: 20120511
  Receipt Date: 20120430
  Transmission Date: 20120825
  Serious: Yes (Hospitalization, Other)
  Sender: FDA-Public Use
  Company Number: US-ELI_LILLY_AND_COMPANY-US201205000444

PATIENT
  Age: 48 Year
  Sex: Female

DRUGS (21)
  1. ALBUTEROL SULFATE [Concomitant]
     Dosage: UNK, UNKNOWN
  2. KLOR-CON [Concomitant]
     Dosage: UNK, UNKNOWN
  3. THEOPHYLLINE [Concomitant]
     Dosage: UNK, UNKNOWN
  4. TOPIRAMATE [Concomitant]
     Dosage: UNK, UNKNOWN
  5. CYMBALTA [Suspect]
     Dosage: 60 MG, QD
  6. PREDNISONE [Concomitant]
     Dosage: UNK, UNKNOWN
  7. COMBIVENT [Concomitant]
     Dosage: UNK, UNKNOWN
  8. OMEPRAZOLE [Concomitant]
     Dosage: UNK, UNKNOWN
  9. SINGULAIR [Concomitant]
     Dosage: UNK, UNKNOWN
  10. TRICOR [Concomitant]
     Dosage: UNK, UNKNOWN
  11. CYMBALTA [Suspect]
     Dosage: 90 MG, QD
  12. DUONEB [Concomitant]
     Dosage: UNK, UNKNOWN
  13. CYMBALTA [Suspect]
     Indication: GENERALISED ANXIETY DISORDER
     Dosage: 90 MG, QD
  14. XANAX [Concomitant]
     Indication: ANXIETY
     Dosage: UNK, UNKNOWN
  15. ADVAIR DISKUS 100/50 [Concomitant]
     Dosage: UNK, UNKNOWN
  16. FLONASE [Concomitant]
     Dosage: UNK, UNKNOWN
  17. FUROSEMIDE [Concomitant]
     Dosage: UNK, UNKNOWN
  18. VERAPAMIL [Concomitant]
     Dosage: UNK, UNKNOWN
  19. XANAX [Concomitant]
     Dosage: UNK, UNKNOWN
  20. LYRICA [Concomitant]
     Dosage: UNK, UNKNOWN
  21. VITAMIN TAB [Concomitant]
     Dosage: UNK, UNKNOWN

REACTIONS (10)
  - RIB FRACTURE [None]
  - OSTEOPOROSIS [None]
  - SEPSIS [None]
  - STAPHYLOCOCCAL INFECTION [None]
  - MAJOR DEPRESSION [None]
  - ANXIETY [None]
  - PNEUMONIA [None]
  - OSTEOARTHRITIS [None]
  - ADDISON'S DISEASE [None]
  - DRUG INEFFECTIVE [None]
